FAERS Safety Report 4423959-5 (Version None)
Quarter: 2004Q3

REPORT INFORMATION
  Report Type: 
  Country: None (occurrence: None)
  Receive Date: 20040809
  Receipt Date: 20040727
  Transmission Date: 20050211
  Serious: Yes (Death)
  Sender: FDA-Public Use
  Company Number: 2004225890IT

PATIENT
  Age: 45 Year
  Sex: Female

DRUGS (20)
  1. CORTISONE ACETATE [Suspect]
     Dosage: 25 MG, BID
     Dates: start: 20020927, end: 20021103
  2. CLAVUMOX (AMOXICILLIN, CLAVULANATE POTASSIUM) TABLET [Suspect]
     Dosage: 1200 MB, TID, IV
     Route: 042
     Dates: start: 20021004, end: 20021019
  3. DIAZEMULS (DIAZEPAM) EMULSION, STERILE [Suspect]
     Dosage: QD
     Dates: start: 20021009
  4. ALOPERIDOLO CE (HALOPERIDOL) TABLET [Suspect]
     Dosage: QD
     Dates: start: 20021009
  5. PANTOPAN (PANTOPRAZOLE) TABLET [Suspect]
     Dates: start: 20021009
  6. OMEPRAZOLE [Concomitant]
  7. CALCITRIOL [Concomitant]
  8. CALCIUM LACTOGLUCONATE (CALCIUM LACTOGLUCONATE) [Concomitant]
  9. CALCIUM CARBONATE [Concomitant]
  10. ALUMINIUM HYDROXIDE W/MAGNESIUM HYDROXIDE [Concomitant]
  11. FLUDROCORTISONE ACETATE TAB [Concomitant]
  12. NYSTATIN [Concomitant]
  13. LEVOFLOXACIN [Concomitant]
  14. FUROSEMIDE [Concomitant]
  15. CANRENOIC ACID (CANRENOIC ACID) [Concomitant]
  16. ITRACONAZOLE [Concomitant]
  17. CALCIUM GLUCONATE [Concomitant]
  18. AMINO ACIDS NOS [Concomitant]
  19. RABEPRAZOLE SODIUM [Concomitant]
  20. FLUDROCORTISONE ACETATE TAB [Concomitant]

REACTIONS (9)
  - AGITATION [None]
  - BLOOD CULTURE POSITIVE [None]
  - CHEST X-RAY ABNORMAL [None]
  - HALLUCINATION [None]
  - OLIGURIA [None]
  - PYREXIA [None]
  - RESPIRATORY DISTRESS [None]
  - SEPTIC SHOCK [None]
  - TOXIC EPIDERMAL NECROLYSIS [None]
